FAERS Safety Report 11112322 (Version 1)
Quarter: 2015Q2

REPORT INFORMATION
  Report Type: Spontaneous
  Country: US (occurrence: US)
  Receive Date: 20150514
  Receipt Date: 20150514
  Transmission Date: 20150821
  Serious: No
  Sender: FDA-Public Use
  Company Number: US-PFIZER INC-2015163641

PATIENT
  Sex: Female

DRUGS (2)
  1. LYRICA [Suspect]
     Active Substance: PREGABALIN
     Dosage: 25 MG, 3X/DAY
  2. LYRICA [Suspect]
     Active Substance: PREGABALIN
     Dosage: 100MG TWICE A DAY, MORNING + NIGHT

REACTIONS (4)
  - Drug ineffective [Unknown]
  - Asthenia [Unknown]
  - Feeling abnormal [Unknown]
  - Dizziness [Unknown]
